FAERS Safety Report 23029921 (Version 3)
Quarter: 2024Q1

REPORT INFORMATION
  Report Type: Spontaneous
  Country: JP (occurrence: JP)
  Receive Date: 20231005
  Receipt Date: 20240214
  Transmission Date: 20240409
  Serious: Yes (Life-Threatening, Hospitalization, Other)
  Sender: FDA-Public Use
  Company Number: JP-BEH-2023159772

PATIENT
  Age: 40 Year
  Sex: Male
  Weight: 85.7 kg

DRUGS (23)
  1. HIZENTRA [Suspect]
     Active Substance: HUMAN IMMUNOGLOBULIN G
     Indication: Immunodeficiency common variable
     Dosage: INITIAL DOSE WAS 4G AND INCREASED TO 16G, QW
     Route: 058
     Dates: start: 20230127, end: 202305
  2. HIZENTRA [Suspect]
     Active Substance: HUMAN IMMUNOGLOBULIN G
     Indication: Immunoglobulin therapy
     Dosage: 16 GRAM, SINGLE
     Route: 058
     Dates: start: 20230602, end: 20230602
  3. HIZENTRA [Suspect]
     Active Substance: HUMAN IMMUNOGLOBULIN G
     Dosage: 16 GRAM, SINGLE
     Route: 058
     Dates: start: 20230609, end: 20230609
  4. HIZENTRA [Suspect]
     Active Substance: HUMAN IMMUNOGLOBULIN G
     Dosage: 16 GRAM, SINGLE
     Route: 058
     Dates: start: 20230616, end: 20230616
  5. HIZENTRA [Suspect]
     Active Substance: HUMAN IMMUNOGLOBULIN G
     Dosage: 4 VIALS (V), SINGLE
     Route: 058
     Dates: start: 20230703, end: 20230703
  6. HUMALOG [Concomitant]
     Active Substance: INSULIN LISPRO
     Dosage: THREE U IN THE MORNING, AND FOUR U AT NOON AND IN THE EVENING, TID
  7. INSULIN GLARGINE [Concomitant]
     Active Substance: INSULIN GLARGINE
     Dosage: 5 INTERNATIONAL UNIT (FIVE U AT BEDTIME), HS
  8. VFEND [Concomitant]
     Active Substance: VORICONAZOLE
     Dosage: 1 TABLET, TWO DIVIDED DOSES: TWO AND A HALF HOURS AFTER BREAKFAST, AND BEFORE BEDTIME
  9. SULFAMETHOXAZOLE\TRIMETHOPRIM [Concomitant]
     Active Substance: SULFAMETHOXAZOLE\TRIMETHOPRIM
     Dosage: 1 TABLET, ONE DIVIDED DOSE: IMMEDIATELY AFTER BREAKFAST
  10. TENELIA OD [Concomitant]
     Dosage: 1 TABLET, ONE DIVIDED DOSE: IMMEDIATELY AFTER BREAKFAST
  11. METGLUCO [Concomitant]
     Active Substance: METFORMIN HYDROCHLORIDE
     Dosage: 2 TABLET, TWO DIVIDED DOSES: IMMEDIATELY AFTER BREAKFAST AND DINNER
  12. LEVOTHYROXINE SODIUM [Concomitant]
     Active Substance: LEVOTHYROXINE SODIUM
     Dosage: 3 TABLETS, ONE DIVIDED DOSE: IMMEDIATELY AFTER BREAKFAST
  13. LEVOTHYROXINE SODIUM [Concomitant]
     Active Substance: LEVOTHYROXINE SODIUM
     Dosage: 162.5 MICROGRAM (4 TABLETS), ONE DIVIDED DOSE: IMMEDIATELY AFTER BREAKFAST
  14. CALONAL [Concomitant]
     Active Substance: ACETAMINOPHEN
     Indication: Pain
     Dosage: 1 TABLET, WHEN PAIN OCCURRED
  15. BISOPROLOL FUMARATE [Concomitant]
     Active Substance: BISOPROLOL FUMARATE
     Dosage: 1 TABLET, ONE DIVIDED DOSE: IMMEDIATELY AFTER BREAKFAST
  16. SPIRONOLACTONE [Concomitant]
     Active Substance: SPIRONOLACTONE
     Dosage: 1 TABLET, ONE DIVIDED DOSE: IMMEDIATELY AFTER BREAKFAST
  17. FUROSEMIDE [Concomitant]
     Active Substance: FUROSEMIDE
     Dosage: 1 TABLET, ONE DIVIDED DOSE: IMMEDIATELY AFTER BREAKFAST
  18. ROSUVASTATIN [Concomitant]
     Active Substance: ROSUVASTATIN
     Dosage: 1 TABLET, ONE DIVIDED DOSE: IMMEDIATELY AFTER BREAKFAST
  19. ASPIRIN [Concomitant]
     Active Substance: ASPIRIN
     Dosage: 1 TABLET, ONE DIVIDED DOSE: IMMEDIATELY AFTER BREAKFAST
  20. ALLOPURINOL [Concomitant]
     Active Substance: ALLOPURINOL
     Dosage: 1 TABLET, ONE DIVIDED DOSE: IMMEDIATELY AFTER BREAKFAST
  21. WARFARIN [Concomitant]
     Active Substance: WARFARIN
     Dosage: 5 TABLETS, ONE DIVIDED DOSE: IMMEDIATELY AFTER DINNER
  22. VORICONAZOLE [Concomitant]
     Active Substance: VORICONAZOLE
     Dosage: UNK
     Dates: start: 20230426
  23. SULFAMETHOXAZOLE\TRIMETHOPRIM [Concomitant]
     Active Substance: SULFAMETHOXAZOLE\TRIMETHOPRIM
     Indication: Prophylaxis

REACTIONS (5)
  - Endocarditis [Recovering/Resolving]
  - Aortic valve incompetence [Unknown]
  - Aspergillus test positive [Unknown]
  - Blood beta-D-glucan increased [Not Recovered/Not Resolved]
  - Aortic valve stenosis [Recovering/Resolving]

NARRATIVE: CASE EVENT DATE: 20230101
